FAERS Safety Report 4831205-3 (Version None)
Quarter: 2005Q4

REPORT INFORMATION
  Report Type: 
  Country: None (occurrence: None)
  Receive Date: 20051118
  Receipt Date: 20051108
  Transmission Date: 20060501
  Serious: Yes (Other)
  Sender: FDA-Public Use
  Company Number: 2005AC01793

PATIENT
  Age: 74 Year
  Sex: Female
  Weight: 31 kg

DRUGS (3)
  1. LIDOCAINE [Suspect]
     Dosage: PATIENT SWALLOWED LIDOCAINE INSTEAD OF GARGLING WITH IT AT THE BACK OF THROAT.
     Route: 048
  2. DIGOXIN [Concomitant]
     Indication: ATRIAL FIBRILLATION
  3. QUINIDINE HCL [Concomitant]
     Indication: ATRIAL FIBRILLATION

REACTIONS (10)
  - ACCIDENTAL EXPOSURE [None]
  - ACCIDENTAL OVERDOSE [None]
  - AGGRESSION [None]
  - AGITATION [None]
  - DELIRIUM [None]
  - DISORIENTATION [None]
  - DRUG TOXICITY [None]
  - MEDICATION ERROR [None]
  - MENTAL STATUS CHANGES [None]
  - SINUS TACHYCARDIA [None]
